FAERS Safety Report 23141573 (Version 1)
Quarter: 2023Q4

REPORT INFORMATION
  Report Type: Spontaneous
  Country: DE (occurrence: DE)
  Receive Date: 20231103
  Receipt Date: 20231103
  Transmission Date: 20240110
  Serious: Yes (Death, Disabling, Congenital Anomaly, Other)
  Sender: FDA-Public Use
  Company Number: DE-002147023-PHHY2015DE091766

PATIENT
  Sex: Female

DRUGS (20)
  1. ASPIRIN [Suspect]
     Active Substance: ASPIRIN
     Indication: Foetal exposure during pregnancy
     Dosage: MATERNAL DOSE: 100 MG STARTED ON 14 DEC 2011 AND STOPPED ON 20 MAR 2012 FOR A DURATION OF 98 DAYS
     Route: 064
  2. CYCLOPHOSPHAMIDE [Suspect]
     Active Substance: CYCLOPHOSPHAMIDE
     Indication: Foetal exposure during pregnancy
     Dosage: MATERNAL DOSE: 3000 MG CUMULATIVE (PRECONCEPTIONAL)
     Route: 064
  3. ENOXAPARIN SODIUM [Suspect]
     Active Substance: ENOXAPARIN SODIUM
     Indication: Foetal exposure during pregnancy
     Dosage: MATERNAL DOSE: 200 MG, QD FROM 14 DEC 2011 TO 20 MAR 2012 FOR A DURATION OF 98 DAYS
     Route: 064
  4. CYTOTEC [Suspect]
     Active Substance: MISOPROSTOL
     Indication: Foetal exposure during pregnancy
     Dosage: MATERNAL DOSE: UNK (13.6 GESTATIONAL WEEK FOR ONE DAY ON 20 MAR 2012)
     Route: 064
  5. EZETIMIBE [Suspect]
     Active Substance: EZETIMIBE
     Indication: Foetal exposure during pregnancy
     Dosage: MATERNAL DOSE:UNK
     Route: 064
  6. HEPARIN SODIUM [Suspect]
     Active Substance: HEPARIN SODIUM
     Indication: Foetal exposure during pregnancy
     Dosage: MATERNAL DOSE:UNK
     Route: 064
  7. HYDROXYCHLOROQUINE SULFATE [Suspect]
     Active Substance: HYDROXYCHLOROQUINE SULFATE
     Indication: Foetal exposure during pregnancy
     Dosage: MATERNAL DOSE: 400 MG/D (2X200); 0-13.6 GESTATIONAL WEEK STARTED ON 14 DEC 2011 TILL 20 MAR 2012 FOR
     Route: 064
  8. MIFEPRISTONE [Suspect]
     Active Substance: MIFEPRISTONE
     Indication: Foetal exposure during pregnancy
     Dosage: MATERNAL DOSE:UNK (13.6 GESTATIONAL WEEK FOR ONE DAY ON 20 MAR 2012)
     Route: 064
  9. NICOTINE [Suspect]
     Active Substance: NICOTINE
     Indication: Foetal exposure during pregnancy
     Dosage: MATERNAL DOSE:UNK
     Route: 064
  10. METAMIZOLE [Suspect]
     Active Substance: METAMIZOLE
     Indication: Foetal exposure during pregnancy
     Dosage: MATERNAL DOSE:UNK
     Route: 064
  11. PANTOPRAZOLE [Suspect]
     Active Substance: PANTOPRAZOLE
     Indication: Foetal exposure during pregnancy
     Dosage: MATERNAL DOSE: 40 MG, QD FROM 14 DEC 2011 TILL 20 MAR 2012 FOR A DURATION OF 98 DAYS
     Route: 064
  12. PREDNISOLONE [Suspect]
     Active Substance: PREDNISOLONE
     Indication: Foetal exposure during pregnancy
     Dosage: MATERNAL DOSE:10 MG (EVERY OTHER DAY) FROM 14 DEC 2011 TO 20 MAR 2012 FOR A DURATION OF 98 DAYS
     Route: 064
  13. RASILEZ [Suspect]
     Active Substance: ALISKIREN
     Indication: Foetal exposure during pregnancy
     Dosage: MATERNAL DOSE: 300 MG QD STARTED FROM 14 DEC 2011 TILL 17 JAN 2012 FOR A DURATION OF 35 DAYS
     Route: 064
  14. RAMIPRIL [Suspect]
     Active Substance: RAMIPRIL
     Indication: Foetal exposure during pregnancy
     Dosage: MATERNAL DOSE: 20 MG, QD 0-13.6 GESTATIONAL WEEK FROM 14 DEC 2011 TILL 20 MAR 2012 FOR A DURATION OF
     Route: 064
  15. RITUXIMAB [Suspect]
     Active Substance: RITUXIMAB
     Indication: Foetal exposure during pregnancy
     Dosage: MATERNAL DOSE:UNK (LAST TIME IN DECEMBER 2011: PRE OR PERICONCEPTIONAL)
     Route: 064
  16. RIVAROXABAN [Suspect]
     Active Substance: RIVAROXABAN
     Indication: Foetal exposure during pregnancy
     Dosage: MATERNAL DOSE:UNK
     Route: 064
  17. ALBUTEROL [Suspect]
     Active Substance: ALBUTEROL
     Indication: Foetal exposure during pregnancy
     Dosage: MATERNAL DOSE: UNK (IF REQUIRED; TRIMESTER: FIRST AND SECOND)
     Route: 064
  18. SIMVASTATIN [Suspect]
     Active Substance: SIMVASTATIN
     Indication: Foetal exposure during pregnancy
     Dosage: MATERNAL DOSE: UNK STARTING FROM 14 DEC 2011 TILL 20 MAR 2012 FOR A DURATION OF 98 DAYS
     Route: 064
  19. TACROLIMUS [Suspect]
     Active Substance: TACROLIMUS
     Indication: Foetal exposure during pregnancy
     Dosage: MATERNAL DOSE: 6 MG QD STARTED IN 14 DEC 2011 TILL 20 MAR 2012 FOR A DURATION OF 98 DAYS
     Route: 064
  20. TORSEMIDE [Suspect]
     Active Substance: TORSEMIDE
     Indication: Foetal exposure during pregnancy
     Dosage: MATERNAL DOSE:100 MG/D, 0-13.6 GESTATIONAL WEEK FROM 14 DEC 2011 TILL 20 MAR 2012 FOR DURATION OF 98
     Route: 064

REACTIONS (8)
  - Abortion induced [Fatal]
  - Heart disease congenital [Fatal]
  - Cardiac septal defect [Fatal]
  - Congenital cardiovascular anomaly [Fatal]
  - Truncus arteriosus persistent [Fatal]
  - Ventricular septal defect [Fatal]
  - Foetal exposure during pregnancy [Fatal]
  - Foetal exposure during pregnancy [Unknown]
